FAERS Safety Report 13744355 (Version 2)
Quarter: 2017Q4

REPORT INFORMATION
  Report Type: Report from Study
  Country: US (occurrence: US)
  Receive Date: 20170712
  Receipt Date: 20171003
  Transmission Date: 20180320
  Serious: No
  Sender: FDA-Public Use
  Company Number: PHEH2017US021126

PATIENT
  Sex: Male

DRUGS (1)
  1. ENTRESTO [Suspect]
     Active Substance: SACUBITRIL\VALSARTAN
     Indication: PRODUCT USED FOR UNKNOWN INDICATION
     Dosage: 1 DF ( 49 SACUBITRIL, 51 VALSARTAN MG) BID
     Route: 065

REACTIONS (4)
  - Productive cough [Unknown]
  - Dyspnoea [Unknown]
  - Sneezing [Unknown]
  - Cough [Unknown]
